FAERS Safety Report 7166457-0 (Version None)
Quarter: 2010Q4

REPORT INFORMATION
  Report Type: 
  Country: None (occurrence: None)
  Receive Date: 20101216
  Receipt Date: 20101203
  Transmission Date: 20110411
  Serious: Yes (Other)
  Sender: FDA-Public Use
  Company Number: PHHY2010DE82520

PATIENT
  Age: 68 Year
  Sex: Male

DRUGS (4)
  1. AREDIA [Suspect]
     Dosage: UNK
     Dates: end: 20090101
  2. DHC [Concomitant]
     Dosage: UNK
     Dates: start: 19930101
  3. MARCUMAR [Concomitant]
     Dosage: UNK
     Dates: start: 19930101
  4. BISOPROLOL [Concomitant]
     Dosage: UNK
     Dates: start: 19930101

REACTIONS (2)
  - OSTEONECROSIS OF JAW [None]
  - SURGERY [None]
